FAERS Safety Report 7479350-0 (Version None)
Quarter: 2011Q2

REPORT INFORMATION
  Report Type: 
  Country: None (occurrence: None)
  Receive Date: 20110513
  Receipt Date: 20110510
  Transmission Date: 20111010
  Serious: Yes (Hospitalization)
  Sender: FDA-Public Use
  Company Number: US-ELI_LILLY_AND_COMPANY-US201105003080

PATIENT
  Sex: Male

DRUGS (3)
  1. LANTUS [Concomitant]
     Dosage: UNK
  2. HUMULIN R [Suspect]
     Dosage: 24 U, TID
  3. HUMULIN R [Suspect]
     Indication: DIABETES MELLITUS
     Dosage: 24 U, TID

REACTIONS (5)
  - PRODUCT TAMPERING [None]
  - PNEUMONIA [None]
  - OEDEMA PERIPHERAL [None]
  - CHEST DISCOMFORT [None]
  - BOWEL MOVEMENT IRREGULARITY [None]
